FAERS Safety Report 5931908-3 (Version None)
Quarter: 2008Q4

REPORT INFORMATION
  Report Type: 
  Country: None (occurrence: None)
  Receive Date: 20081027
  Receipt Date: 20081016
  Transmission Date: 20090506
  Serious: Yes (Death)
  Sender: FDA-Public Use
  Company Number: SE-PFIZER INC-2008087698

PATIENT
  Sex: Female

DRUGS (29)
  1. GENOTROPIN [Suspect]
     Indication: GROWTH HORMONE DEFICIENCY
     Route: 058
     Dates: start: 19990907
  2. ACETYLCYSTEINE [Concomitant]
     Dosage: DAILY DOSE:200MG
  3. ALVEDON [Concomitant]
     Indication: PAIN
     Dosage: DAILY DOSE:3000MG
  4. ATROVENT [Concomitant]
     Indication: ASTHMA
  5. BETOLVEX [Concomitant]
     Dosage: DAILY DOSE:1MG
     Dates: start: 19970101
  6. CALCICHEW-D3 [Concomitant]
     Indication: HYPOCALCAEMIA
     Dosage: DAILY DOSE:2MG
  7. CIPRAMIL [Concomitant]
     Indication: DEPRESSION
     Dosage: DAILY DOSE:40MG
     Dates: start: 19970101
  8. CIPROFLOXACIN HCL [Concomitant]
     Indication: INFECTION
     Dosage: DAILY DOSE:500MG
     Dates: start: 20011119
  9. CLARITIN [Concomitant]
     Indication: HYPERSENSITIVITY
     Dosage: DAILY DOSE:10MG
  10. DIMETICONE [Concomitant]
     Indication: FLATULENCE
     Dosage: DAILY DOSE:800MG
     Dates: start: 20010615
  11. DOLCONTIN [Concomitant]
     Indication: PAIN
     Dates: start: 20020924
  12. ENALAPRIL MALEATE [Concomitant]
     Indication: HYPERTENSION
     Dosage: DAILY DOSE:10MG
     Dates: start: 20030301
  13. ERCO-FER [Concomitant]
     Indication: ANAEMIA
     Dosage: DAILY DOSE:60MG
     Dates: start: 20021015
  14. ETALPHA [Concomitant]
     Dosage: DAILY DOSE:1MCG
     Dates: start: 20020204
  15. EVOREL [Concomitant]
     Indication: HYPOGONADISM
     Dosage: DAILY DOSE:75MCG
  16. FURIX [Concomitant]
     Indication: OEDEMA
     Dosage: DAILY DOSE:200MG
     Dates: start: 20060515
  17. HYDROCORTISONE [Concomitant]
     Dosage: DAILY DOSE:50MG
     Dates: start: 20060521
  18. IMIGRAN [Concomitant]
     Indication: MIGRAINE
     Dosage: DAILY DOSE:20MG
  19. LANSOPRAZOLE [Concomitant]
     Dates: start: 20031111
  20. LEVOTHYROXINE SODIUM [Concomitant]
     Indication: HYPOTHYROIDISM
     Dosage: DAILY DOSE:.15MG
     Dates: start: 20010926
  21. NORVASC [Concomitant]
     Indication: HYPERTENSION
     Dosage: DAILY DOSE:5MG
     Dates: start: 20030906
  22. PROPAVAN [Concomitant]
     Indication: INSOMNIA
     Dosage: DAILY DOSE:25MG
     Dates: start: 20020110
  23. REMERON [Concomitant]
     Indication: INSOMNIA
     Dosage: DAILY DOSE:30MG
  24. SPIRONOLACTONE [Concomitant]
     Dosage: DAILY DOSE:10MG
     Dates: start: 20060415
  25. DIAZEPAM [Concomitant]
     Indication: DEPRESSION
     Dosage: DAILY DOSE:10MG
     Dates: start: 20020110
  26. SYMBICORT [Concomitant]
     Indication: ASTHMA
     Dosage: DAILY DOSE:320MG
     Dates: start: 20050301
  27. TENORMIN [Concomitant]
     Indication: HYPERTENSION
     Dosage: DAILY DOSE:100MG
     Dates: start: 20070412
  28. XENICAL [Concomitant]
     Dates: start: 20011119
  29. ZYLORIC ^FAES^ [Concomitant]
     Dosage: DAILY DOSE:300MG
     Dates: start: 20020628

REACTIONS (1)
  - DEATH [None]
